FAERS Safety Report 5077224-6 (Version None)
Quarter: 2006Q3

REPORT INFORMATION
  Report Type: 
  Country: None (occurrence: None)
  Receive Date: 20060810
  Receipt Date: 20060106
  Transmission Date: 20061208
  Serious: No
  Sender: FDA-Public Use
  Company Number: US-GLAXOSMITHKLINE-A0588188A

PATIENT
  Age: 48 Year
  Sex: Female

DRUGS (3)
  1. PAXIL [Suspect]
     Indication: MAJOR DEPRESSION
     Dosage: 75MG PER DAY
     Route: 048
  2. MEGACE [Concomitant]
  3. UNKNOWN [Concomitant]

REACTIONS (1)
  - PRESCRIBED OVERDOSE [None]
